FAERS Safety Report 24542650 (Version 2)
Quarter: 2024Q4

REPORT INFORMATION
  Report Type: Spontaneous
  Country: CO (occurrence: CO)
  Receive Date: 20241024
  Receipt Date: 20241119
  Transmission Date: 20250114
  Serious: Yes (Hospitalization, Other)
  Sender: MERCK
  Company Number: CO-009507513-2407COL005248

PATIENT
  Age: 76 Year
  Sex: Female

DRUGS (5)
  1. JANUVIA [Suspect]
     Active Substance: SITAGLIPTIN PHOSPHATE
     Dosage: 1 TABLET, QD
     Route: 048
     Dates: start: 202403, end: 202406
  2. JANUVIA [Suspect]
     Active Substance: SITAGLIPTIN PHOSPHATE
     Dosage: 1 TABLET, QD
     Route: 048
     Dates: start: 202408
  3. METFORMIN [Concomitant]
     Active Substance: METFORMIN HYDROCHLORIDE
     Indication: Diabetes mellitus
     Dosage: UNK UNK, QD
     Route: 048
  4. INSULIN NOS [Concomitant]
     Active Substance: INSULIN NOS
     Dosage: 26 INTERNATIONAL UNIT, QD
     Route: 058
  5. INSULIN NOS [Concomitant]
     Active Substance: INSULIN NOS
     Dosage: 5 INTERNATIONAL UNIT, TID
     Route: 058

REACTIONS (9)
  - Respiratory tract infection [Recovered/Resolved]
  - Diabetes mellitus inadequate control [Unknown]
  - Blood glucose increased [Not Recovered/Not Resolved]
  - Vomiting [Not Recovered/Not Resolved]
  - Weight decreased [Not Recovered/Not Resolved]
  - Decreased appetite [Not Recovered/Not Resolved]
  - Blood glucose abnormal [Unknown]
  - Product availability issue [Unknown]
  - Product dose omission issue [Unknown]

NARRATIVE: CASE EVENT DATE: 20240101
